FAERS Safety Report 25710673 (Version 1)
Quarter: 2025Q3

REPORT INFORMATION
  Report Type: Spontaneous
  Country: US (occurrence: US)
  Receive Date: 20250821
  Receipt Date: 20250821
  Transmission Date: 20251020
  Serious: No
  Sender: MERCK SHARP & DOHME LLC
  Company Number: US-009507513-2317176

PATIENT
  Age: 56 Year
  Sex: Male

DRUGS (9)
  1. WINREVAIR [Suspect]
     Active Substance: SOTATERCEPT-CSRK
     Indication: Pulmonary hypertension
     Dates: start: 20250407
  2. WINREVAIR [Suspect]
     Active Substance: SOTATERCEPT-CSRK
  3. WINREVAIR [Suspect]
     Active Substance: SOTATERCEPT-CSRK
  4. WINREVAIR [Suspect]
     Active Substance: SOTATERCEPT-CSRK
  5. ALBUTEROL [Concomitant]
     Active Substance: ALBUTEROL
  6. AMLODIPINE [Concomitant]
     Active Substance: AMLODIPINE BESYLATE
  7. ASPIRIN [Concomitant]
     Active Substance: ASPIRIN
  8. PREDNISONE [Concomitant]
     Active Substance: PREDNISONE
  9. LASIX [Concomitant]
     Active Substance: FUROSEMIDE

REACTIONS (1)
  - Rash macular [Unknown]

NARRATIVE: CASE EVENT DATE: 20250716
